FAERS Safety Report 5690707-0 (Version None)
Quarter: 2008Q2

REPORT INFORMATION
  Report Type: 
  Country: None (occurrence: None)
  Receive Date: 20080401
  Receipt Date: 20080312
  Transmission Date: 20081010
  Serious: Yes (Other)
  Sender: FDA-Public Use
  Company Number: JP-MERCK-0801USA04522

PATIENT
  Age: 15 Year
  Sex: Male

DRUGS (4)
  1. SINGULAIR [Suspect]
     Indication: ASTHMA
     Route: 048
     Dates: start: 20070529, end: 20071223
  2. FERROMIA [Concomitant]
     Route: 048
     Dates: start: 20070820, end: 20071223
  3. PULMICORT [Concomitant]
     Dates: start: 20070627, end: 20071223
  4. HYALURONATE SODIUM [Concomitant]
     Route: 047
     Dates: start: 20071112

REACTIONS (3)
  - ERYTHEMA [None]
  - RASH [None]
  - URTICARIA [None]
